FAERS Safety Report 17953154 (Version 2)
Quarter: 2021Q2

REPORT INFORMATION
  Report Type: Spontaneous
  Country: RO (occurrence: RO)
  Receive Date: 20200627
  Receipt Date: 20210614
  Transmission Date: 20210717
  Serious: Yes (Hospitalization, Other)
  Sender: FDA-Public Use
  Company Number: NVSC2020RO175673

PATIENT
  Age: 46 Year
  Sex: Male

DRUGS (1)
  1. OMEPRAZOLE. [Suspect]
     Active Substance: OMEPRAZOLE
     Indication: PRODUCT USED FOR UNKNOWN INDICATION
     Dosage: UNK (7 PILLS)
     Route: 048

REACTIONS (5)
  - Coma [Unknown]
  - Pneumonia [Unknown]
  - Pneumonia aspiration [Unknown]
  - Suicide attempt [Unknown]
  - Acute respiratory failure [Unknown]
